FAERS Safety Report 16285181 (Version 1)
Quarter: 2019Q2

REPORT INFORMATION
  Report Type: Spontaneous
  Country: US (occurrence: US)
  Receive Date: 20190402
  Receipt Date: 20190402
  Transmission Date: 20190711
  Serious: No
  Sender: FDA-Public Use
  Company Number: None

PATIENT
  Age: 66 Year
  Sex: Female
  Weight: 84.82 kg

DRUGS (2)
  1. BENLYSTA [Suspect]
     Active Substance: BELIMUMAB
     Indication: ARTHRALGIA
     Dosage: ?          OTHER FREQUENCY:OVER 1HR WK 0,2 +4;?
     Route: 042
     Dates: start: 201903
  2. BENLYSTA [Suspect]
     Active Substance: BELIMUMAB
     Indication: SYSTEMIC LUPUS ERYTHEMATOSUS
     Dosage: ?          OTHER FREQUENCY:OVER 1HR WK 0,2 +4;?
     Route: 042
     Dates: start: 201903

REACTIONS (1)
  - Cystitis [None]
